FAERS Safety Report 6053271-2 (Version None)
Quarter: 2009Q1

REPORT INFORMATION
  Report Type: 
  Country: None (occurrence: None)
  Receive Date: 20090127
  Receipt Date: 20090119
  Transmission Date: 20090719
  Serious: Yes (Death, Life-Threatening, Hospitalization, Congenital Anomaly)
  Sender: FDA-Public Use
  Company Number: A0646230A

PATIENT
  Sex: Male
  Weight: 3.7 kg

DRUGS (5)
  1. PAXIL CR [Suspect]
     Indication: DEPRESSION
     Dates: start: 20030815, end: 20040101
  2. SINGULAIR [Concomitant]
     Indication: ASTHMA
     Dosage: 10MG PER DAY
     Dates: start: 20040202
  3. ALBUTEROL SULATE [Concomitant]
     Indication: ASTHMA
     Dosage: 2PUFF PER DAY
     Dates: start: 20030101
  4. VITAMIN TAB [Concomitant]
     Dates: start: 20040225
  5. METRONIDAZOLE [Concomitant]
     Dates: start: 20040506

REACTIONS (21)
  - ATRIAL SEPTAL DEFECT [None]
  - CARDIOMEGALY [None]
  - COAGULOPATHY [None]
  - COARCTATION OF THE AORTA [None]
  - CONGENITAL ANOMALY [None]
  - CONGENITAL CARDIOVASCULAR ANOMALY [None]
  - DRUG EXPOSURE DURING PREGNANCY [None]
  - HEART INJURY [None]
  - HEART VALVE INCOMPETENCE [None]
  - HEPATIC CIRRHOSIS [None]
  - HEPATIC FAILURE [None]
  - HEPATOMEGALY [None]
  - HYDROCELE [None]
  - HYPOPLASTIC LEFT HEART SYNDROME [None]
  - METABOLIC ACIDOSIS [None]
  - PATENT DUCTUS ARTERIOSUS [None]
  - PULMONARY OEDEMA [None]
  - RENAL FAILURE [None]
  - RESPIRATORY DISTRESS [None]
  - RESPIRATORY FAILURE [None]
  - VENTRICULAR HYPOPLASIA [None]
